FAERS Safety Report 20136628 (Version 1)
Quarter: 2021Q4

REPORT INFORMATION
  Report Type: Spontaneous
  Country: US (occurrence: None)
  Receive Date: 20211201
  Receipt Date: 20211201
  Transmission Date: 20220303
  Serious: Yes (Other)
  Sender: FDA-Public Use
  Company Number: None

PATIENT
  Age: 74 Year
  Sex: Female
  Weight: 81 kg

DRUGS (2)
  1. CELECOXIB [Suspect]
     Active Substance: CELECOXIB
     Indication: Bursitis
     Dosage: OTHER FREQUENCY : ONE A DAY;?
     Route: 048
     Dates: start: 20211108, end: 20211120
  2. PREDNISONE [Suspect]
     Active Substance: PREDNISONE

REACTIONS (5)
  - Mouth ulceration [None]
  - Abdominal pain upper [None]
  - Oesophageal pain [None]
  - Blood glucose increased [None]
  - Weight decreased [None]

NARRATIVE: CASE EVENT DATE: 20211108
